FAERS Safety Report 6814942-0 (Version None)
Quarter: 2010Q3

REPORT INFORMATION
  Report Type: 
  Country: None (occurrence: None)
  Receive Date: 20100701
  Receipt Date: 20100701
  Transmission Date: 20110219
  Serious: Yes (Other)
  Sender: FDA-Public Use
  Company Number: None

PATIENT
  Sex: Male
  Weight: 72.5755 kg

DRUGS (1)
  1. LEVAQUIN [Suspect]
     Indication: INFECTION
     Dosage: 750 MG 1 PER DAY ORAL
     Route: 048
     Dates: start: 20100523, end: 20100526

REACTIONS (3)
  - ABASIA [None]
  - OEDEMA PERIPHERAL [None]
  - TENDON PAIN [None]
